FAERS Safety Report 9694685 (Version 2)
Quarter: 2013Q4

REPORT INFORMATION
  Report Type: Spontaneous
  Country: US (occurrence: US)
  Receive Date: 20131119
  Receipt Date: 20131127
  Transmission Date: 20140711
  Serious: Yes (Other)
  Sender: FDA-Public Use
  Company Number: US-BIOGENIDEC-2013BI109636

PATIENT
  Sex: Female

DRUGS (4)
  1. AVONEX [Suspect]
     Indication: MULTIPLE SCLEROSIS
     Route: 030
     Dates: start: 19960601
  2. AVONEX [Suspect]
     Indication: MULTIPLE SCLEROSIS
     Route: 030
     Dates: end: 20010101
  3. COPAXONE [Concomitant]
     Indication: MULTIPLE SCLEROSIS
  4. BETASERON [Concomitant]
     Indication: MULTIPLE SCLEROSIS

REACTIONS (1)
  - Breast cancer [Recovered/Resolved]
